FAERS Safety Report 8397118-8 (Version None)
Quarter: 2012Q2

REPORT INFORMATION
  Report Type: 
  Country: None (occurrence: None)
  Receive Date: 20120530
  Receipt Date: 20120529
  Transmission Date: 20120825
  Serious: Yes (Other)
  Sender: FDA-Public Use
  Company Number: CA-ROCHE-1064408

PATIENT
  Sex: Female

DRUGS (11)
  1. VEMURAFENIB [Suspect]
  2. MORPHINE [Concomitant]
  3. RABEPRAZOLE SODIUM [Concomitant]
  4. VEMURAFENIB [Suspect]
     Indication: METASTATIC MALIGNANT MELANOMA
     Route: 048
  5. PANTOPRAZOLE [Concomitant]
  6. DEXAMETHASONE [Concomitant]
  7. MULTI-VITAMIN [Concomitant]
  8. NYSTATIN [Concomitant]
  9. ZOPLICONE (UNK INGREDIENTS) [Concomitant]
  10. VERAPAMIL HCL [Concomitant]
  11. WELLBUTRIN [Concomitant]

REACTIONS (13)
  - HEADACHE [None]
  - CONFUSIONAL STATE [None]
  - NASOPHARYNGITIS [None]
  - HYPOAESTHESIA [None]
  - VISION BLURRED [None]
  - FATIGUE [None]
  - TREMOR [None]
  - MALAISE [None]
  - DRY SKIN [None]
  - DYSPHEMIA [None]
  - PAIN IN EXTREMITY [None]
  - INFLUENZA [None]
  - SKIN EXFOLIATION [None]
